FAERS Safety Report 12846966 (Version 1)
Quarter: 2016Q4

REPORT INFORMATION
  Report Type: Spontaneous
  Country: US (occurrence: US)
  Receive Date: 20161014
  Receipt Date: 20161014
  Transmission Date: 20170207
  Serious: No
  Sender: FDA-Public Use
  Company Number: US-VERTEX PHARMACEUTICALS-2016-005803

PATIENT
  Age: 18 Year
  Sex: Male

DRUGS (3)
  1. TOBRAMYCIN. [Concomitant]
     Active Substance: TOBRAMYCIN
     Dosage: INHALED 5ML VIA NEBULIZER, BID FOR 28 DAYS ON AND 28 DAYS OFF
     Route: 055
     Dates: start: 201602
  2. KALYDECO [Suspect]
     Active Substance: IVACAFTOR
     Indication: CYSTIC FIBROSIS
     Dosage: 150 MG, BID
     Route: 048
     Dates: start: 201601
  3. PULMOZYME [Concomitant]
     Active Substance: DORNASE ALFA
     Dosage: INHALED 2.5MG,ORALLY, BID
     Route: 055
     Dates: start: 201602

REACTIONS (1)
  - Depressed mood [Unknown]

NARRATIVE: CASE EVENT DATE: 201609
